FAERS Safety Report 9767905 (Version 2)
Quarter: 2013Q4

REPORT INFORMATION
  Report Type: Spontaneous
  Country: US (occurrence: US)
  Receive Date: 20131217
  Receipt Date: 20131217
  Transmission Date: 20140711
  Serious: Yes (Other)
  Sender: FDA-Public Use
  Company Number: PHEH2013US021002

PATIENT
  Age: 60 Year
  Sex: Female
  Weight: 58.96 kg

DRUGS (6)
  1. RECLAST [Suspect]
     Indication: OSTEOPOROSIS
     Dosage: 5 MG, ONCE
     Route: 042
     Dates: start: 20130920
  2. AZILECT [Concomitant]
     Dosage: 1 MG, QD
     Route: 048
  3. MIRAPEX [Concomitant]
     Dosage: 1 MG, TID
     Route: 048
  4. SINAREST                           /00384601/ [Concomitant]
     Dosage: 1 DF, QID
  5. AMANTADINE [Concomitant]
     Dosage: 1 DF, BID
     Route: 048
  6. SONATA [Concomitant]
     Dosage: 1 DF, PM
     Route: 048

REACTIONS (8)
  - Exophthalmos [Unknown]
  - Antibody test positive [Unknown]
  - Iritis [Recovered/Resolved]
  - Eye inflammation [Unknown]
  - Eye pain [Unknown]
  - Iridocyclitis [Recovered/Resolved]
  - Eye swelling [Unknown]
  - Eyelid oedema [Unknown]
